FAERS Safety Report 9748223 (Version 2)
Quarter: 2013Q4

REPORT INFORMATION
  Report Type: Spontaneous
  Country: US (occurrence: US)
  Receive Date: 20131212
  Receipt Date: 20131226
  Transmission Date: 20140711
  Serious: No
  Sender: FDA-Public Use
  Company Number: US-PFIZER INC-2013355401

PATIENT
  Age: 62 Year
  Sex: Female
  Weight: 54.42 kg

DRUGS (2)
  1. PRISTIQ [Suspect]
     Indication: DEPRESSION
     Dosage: 100 MG, UNK
     Dates: start: 2011
  2. PRISTIQ [Suspect]
     Dosage: 50 MG, UNK

REACTIONS (11)
  - Drug dose omission [Unknown]
  - Drug withdrawal syndrome [Recovered/Resolved]
  - Dizziness [Recovered/Resolved]
  - Nausea [Recovered/Resolved]
  - Headache [Recovered/Resolved]
  - Dry mouth [Not Recovered/Not Resolved]
  - Glossodynia [Not Recovered/Not Resolved]
  - Cheilitis [Not Recovered/Not Resolved]
  - Oral discomfort [Not Recovered/Not Resolved]
  - Stomatitis [Not Recovered/Not Resolved]
  - Drug ineffective [Unknown]
